FAERS Safety Report 10381858 (Version 1)
Quarter: 2014Q3

REPORT INFORMATION
  Report Type: Spontaneous
  Country: US (occurrence: US)
  Receive Date: 20140813
  Receipt Date: 20140813
  Transmission Date: 20150326
  Serious: Yes (Other)
  Sender: FDA-Public Use
  Company Number: US-GLAXOSMITHKLINE-A1084840A

PATIENT
  Age: 54 Year
  Sex: Male

DRUGS (1)
  1. VOTRIENT [Suspect]
     Active Substance: PAZOPANIB HYDROCHLORIDE
     Indication: RENAL CANCER
     Dosage: 200MG UNKNOWN
     Route: 065
     Dates: start: 20140423, end: 201407

REACTIONS (2)
  - Renal tumour excision [Unknown]
  - Renal surgery [Unknown]

NARRATIVE: CASE EVENT DATE: 20140707
